FAERS Safety Report 9357328 (Version 1)
Quarter: 2013Q2

REPORT INFORMATION
  Report Type: Spontaneous
  Country: FR (occurrence: FR)
  Receive Date: 20130620
  Receipt Date: 20130620
  Transmission Date: 20140414
  Serious: Yes (Hospitalization)
  Sender: FDA-Public Use
  Company Number: FR-JNJFOC-20130610076

PATIENT
  Age: 56 Year
  Sex: Male

DRUGS (3)
  1. IXPRIM [Suspect]
     Indication: HEADACHE
     Route: 048
     Dates: start: 20130314, end: 20130315
  2. CONTRAMAL [Concomitant]
     Indication: HEADACHE
     Route: 042
     Dates: start: 20130313, end: 20130313
  3. KETOPROFEN [Concomitant]
     Indication: HEADACHE
     Route: 042
     Dates: start: 20130313, end: 20130313

REACTIONS (1)
  - Malaise [Recovered/Resolved]
